FAERS Safety Report 19842692 (Version 1)
Quarter: 2021Q3

REPORT INFORMATION
  Report Type: Other
  Country: PL (occurrence: PL)
  Receive Date: 20210916
  Receipt Date: 20210916
  Transmission Date: 20211014
  Serious: Yes (Hospitalization, Other)
  Sender: FDA-Public Use
  Company Number: PL-GLENMARK PHARMACEUTICALS-2021GMK067814

PATIENT

DRUGS (2)
  1. LAMOTRIGINE. [Suspect]
     Active Substance: LAMOTRIGINE
     Indication: SUICIDE ATTEMPT
     Dosage: 100 MILLIGRAM
     Route: 048
     Dates: start: 20210131, end: 20210131
  2. QUETIAPINE. [Suspect]
     Active Substance: QUETIAPINE
     Indication: SUICIDE ATTEMPT
     Dosage: UNK
     Route: 048
     Dates: start: 20210131, end: 20210131

REACTIONS (3)
  - Suicide attempt [Unknown]
  - Epilepsy [Unknown]
  - Somnolence [Unknown]

NARRATIVE: CASE EVENT DATE: 20210131
